FAERS Safety Report 23816368 (Version 1)
Quarter: 2024Q2

REPORT INFORMATION
  Report Type: Spontaneous
  Country: CA (occurrence: CA)
  Receive Date: 20240503
  Receipt Date: 20240503
  Transmission Date: 20240716
  Serious: Yes (Other)
  Sender: FDA-Public Use
  Company Number: CA-TEVA-VS-3192167

PATIENT
  Age: 15 Year
  Sex: Female
  Weight: 66 kg

DRUGS (1)
  1. DOXYCYCLINE [Suspect]
     Active Substance: DOXYCYCLINE
     Indication: Acne
     Route: 048

REACTIONS (8)
  - Duodenitis [Recovered/Resolved]
  - Erosive oesophagitis [Recovered/Resolved]
  - Gastric ulcer [Recovered/Resolved]
  - Intentional product use issue [Recovered/Resolved]
  - Mouth ulceration [Recovered/Resolved]
  - Off label use [Recovered/Resolved]
  - Petechiae [Recovered/Resolved]
  - Product administered to patient of inappropriate age [Recovered/Resolved]
